FAERS Safety Report 5811821-2 (Version None)
Quarter: 2008Q3

REPORT INFORMATION
  Report Type: 
  Country: None (occurrence: None)
  Receive Date: 20080715
  Receipt Date: 20080715
  Transmission Date: 20090109
  Serious: Yes (Hospitalization)
  Sender: FDA-Public Use
  Company Number: None

PATIENT
  Age: 28 Year
  Sex: Female
  Weight: 119.4 kg

DRUGS (7)
  1. FAZACLO 25 MG AVANIR [Suspect]
     Indication: HALLUCINATIONS, MIXED
     Dosage: 325 MG ONCE DAILY PO
     Route: 048
     Dates: start: 20080623, end: 20080711
  2. FAZACLO 25 MG AVANIR [Suspect]
     Indication: SCHIZOAFFECTIVE DISORDER
     Dosage: 325 MG ONCE DAILY PO
     Route: 048
     Dates: start: 20080623, end: 20080711
  3. WELLBUTRIN XL [Concomitant]
  4. LEXAPRO [Concomitant]
  5. ATIVAN [Concomitant]
  6. LAMICTAL [Concomitant]
  7. BENZTROPINE [Concomitant]

REACTIONS (3)
  - BLOOD CREATINE PHOSPHOKINASE MB INCREASED [None]
  - PERICARDITIS [None]
  - TROPONIN INCREASED [None]
